FAERS Safety Report 8947945 (Version 1)
Quarter: 2012Q4

REPORT INFORMATION
  Report Type: Spontaneous
  Country: US (occurrence: None)
  Receive Date: 20121203
  Receipt Date: 20121203
  Transmission Date: 20130627
  Serious: No
  Sender: FDA-Public Use
  Company Number: None

PATIENT
  Sex: Female
  Weight: 65.77 kg

DRUGS (1)
  1. PRILOSEC OTC [Suspect]
     Indication: GERD
     Dates: start: 19900101, end: 20100101

REACTIONS (4)
  - Osteoporosis [None]
  - Incorrect drug administration duration [None]
  - Gastrooesophageal reflux disease [None]
  - Condition aggravated [None]
